FAERS Safety Report 8862151 (Version 1)
Quarter: 2012Q4

REPORT INFORMATION
  Report Type: 
  Country: US (occurrence: US)
  Receive Date: 20121026
  Receipt Date: 20121026
  Transmission Date: 20130627
  Serious: Yes (Life-Threatening)
  Sender: FDA-Public Use
  Company Number: US-B.I. PHARMACEUTICALS,INC./RIDGEFIELD-2012-BP-26471BP

PATIENT
  Sex: Female

DRUGS (7)
  1. MICARDIS [Suspect]
     Indication: HYPERTENSION
     Dosage: 80 mg
     Route: 048
  2. MICARDIS HCT [Suspect]
     Indication: HYPERTENSION
     Route: 048
  3. NORVASC [Concomitant]
     Route: 048
  4. POTASSIUM [Concomitant]
     Route: 048
  5. CLINDAMYCIN CREAM [Concomitant]
  6. HYDROCHLOROTHIAZIDE [Concomitant]
     Indication: HYPERTENSION
     Dosage: 25 mg
     Route: 048
  7. EYE VITAMIN [Concomitant]
     Route: 048

REACTIONS (2)
  - Lung neoplasm malignant [Not Recovered/Not Resolved]
  - Rash [Not Recovered/Not Resolved]
